FAERS Safety Report 5355258-1 (Version None)
Quarter: 2007Q2

REPORT INFORMATION
  Report Type: 
  Country: None (occurrence: None)
  Receive Date: 20070613
  Receipt Date: 20070606
  Transmission Date: 20071010
  Serious: Yes (Death, Hospitalization)
  Sender: FDA-Public Use
  Company Number: GB-JNJFOC-20060803584

PATIENT
  Sex: Female
  Weight: 67.5 kg

DRUGS (6)
  1. YONDELIS [Suspect]
     Indication: OVARIAN CANCER
     Route: 042
  2. DOXIL [Suspect]
     Indication: OVARIAN CANCER
     Route: 042
  3. CITALOPRAM HYDROBROMIDE [Concomitant]
     Indication: DEPRESSION
     Route: 048
  4. CHLORHEXIDINE GLUCONATE [Concomitant]
     Route: 048
  5. SODIUM CHLORIDE [Concomitant]
     Route: 042
  6. BLOOD TRANSFUSION [Concomitant]
     Route: 042

REACTIONS (2)
  - NEUTROPENIC SEPSIS [None]
  - RENAL FAILURE ACUTE [None]
